FAERS Safety Report 21380154 (Version 1)
Quarter: 2022Q3

REPORT INFORMATION
  Report Type: Spontaneous
  Country: US (occurrence: None)
  Receive Date: 20220923
  Receipt Date: 20220923
  Transmission Date: 20221026
  Serious: Yes (Other)
  Sender: FDA-Public Use
  Company Number: None

PATIENT
  Age: 72 Year
  Sex: Male
  Weight: 89 kg

DRUGS (1)
  1. HYDROCHLOROTHIAZIDE [Suspect]
     Active Substance: HYDROCHLOROTHIAZIDE
     Indication: Hypertension
     Dosage: 25MG  TAB AM PO
     Route: 048
     Dates: start: 20100401, end: 20220522

REACTIONS (2)
  - Pancreatitis acute [None]
  - Decreased appetite [None]

NARRATIVE: CASE EVENT DATE: 20220516
